FAERS Safety Report 9448965 (Version 1)
Quarter: 2013Q3

REPORT INFORMATION
  Report Type: Report from Study
  Country: US (occurrence: US)
  Receive Date: 20130808
  Receipt Date: 20130808
  Transmission Date: 20140515
  Serious: Yes (Other)
  Sender: FDA-Public Use
  Company Number: US-ABBOTT-13P-163-1128468-00

PATIENT
  Age: 43 Year
  Sex: Female
  Weight: 80.81 kg

DRUGS (6)
  1. HUMIRA [Suspect]
     Indication: CROHN^S DISEASE
     Route: 058
     Dates: start: 2007
  2. METFORMIN [Concomitant]
     Indication: DIABETES MELLITUS
  3. LOSEASONIQUE [Concomitant]
     Indication: PRODUCT USED FOR UNKNOWN INDICATION
  4. REQUIP [Concomitant]
     Indication: RESTLESS LEGS SYNDROME
  5. HCTZ [Concomitant]
     Indication: HYPERTENSION
  6. ANTARA [Concomitant]
     Indication: BLOOD CHOLESTEROL

REACTIONS (4)
  - Gastrointestinal inflammation [Unknown]
  - Vomiting [Recovering/Resolving]
  - Abdominal pain [Recovering/Resolving]
  - Crohn^s disease [Recovering/Resolving]
